FAERS Safety Report 8841209 (Version 1)
Quarter: 2012Q4

REPORT INFORMATION
  Report Type: Report from Study
  Country: FR (occurrence: FR)
  Receive Date: 20121015
  Receipt Date: 20121015
  Transmission Date: 20130627
  Serious: Yes (Hospitalization)
  Sender: FDA-Public Use
  Company Number: FR-ROCHE-1144540

PATIENT
  Age: 60 Year
  Sex: Female

DRUGS (4)
  1. BEVACIZUMAB [Suspect]
     Indication: BREAST CANCER
     Route: 042
     Dates: start: 20110915
  2. FARMORUBICIN [Suspect]
     Indication: BREAST CANCER
     Route: 042
     Dates: start: 20110915
  3. FLUOROURACIL [Suspect]
     Indication: BREAST CANCER
     Route: 042
     Dates: start: 20110915
  4. CYCLOPHOSPHAMIDE [Suspect]
     Indication: BREAST CANCER
     Route: 042
     Dates: start: 20110915

REACTIONS (2)
  - Pyrexia [Unknown]
  - General physical health deterioration [Unknown]
